FAERS Safety Report 25787189 (Version 1)
Quarter: 2025Q3

REPORT INFORMATION
  Report Type: Spontaneous
  Country: CN (occurrence: CN)
  Receive Date: 20250910
  Receipt Date: 20250910
  Transmission Date: 20251020
  Serious: Yes (Life-Threatening, Hospitalization, Other)
  Sender: STRIDES
  Company Number: CN-STRIDES ARCOLAB LIMITED-2025SP011464

PATIENT
  Age: 42 Year
  Sex: Female

DRUGS (4)
  1. OSELTAMIVIR [Suspect]
     Active Substance: OSELTAMIVIR
     Indication: Pneumonia viral
     Route: 065
  2. AZITHROMYCIN [Suspect]
     Active Substance: AZITHROMYCIN
     Indication: Pneumonia
     Route: 048
  3. AZITHROMYCIN [Suspect]
     Active Substance: AZITHROMYCIN
     Indication: Product used for unknown indication
     Route: 042
  4. DEXAMETHASONE [Suspect]
     Active Substance: DEXAMETHASONE
     Indication: Maternal therapy to enhance foetal lung maturity
     Route: 065

REACTIONS (4)
  - Condition aggravated [Unknown]
  - Pneumonia [Unknown]
  - Maternal exposure during pregnancy [Unknown]
  - Off label use [Unknown]
